FAERS Safety Report 15630805 (Version 2)
Quarter: 2018Q4

REPORT INFORMATION
  Report Type: Report from Study
  Country: IL (occurrence: IL)
  Receive Date: 20181119
  Receipt Date: 20181121
  Transmission Date: 20190205
  Serious: Yes (Hospitalization)
  Sender: FDA-Public Use
  Company Number: IL-IPSEN BIOPHARMACEUTICALS, INC.-2018-06691

PATIENT
  Age: 66 Year
  Sex: Male

DRUGS (15)
  1. MICROPIRIN [Concomitant]
     Active Substance: ASPIRIN
     Route: 048
  2. JARDIANCE [Concomitant]
     Active Substance: EMPAGLIFLOZIN
     Route: 048
  3. FERROUS FUMARATE+FOLIC ACID [Concomitant]
     Route: 048
  4. FUSID [FUROSEMIDE] [Concomitant]
     Active Substance: FUROSEMIDE
     Route: 048
  5. ACYCLO-V [Concomitant]
     Route: 048
  6. XERMELO [Concomitant]
     Active Substance: TELOTRISTAT ETHYL
     Dosage: DISCONTINUED
  7. ACARBOSE. [Concomitant]
     Active Substance: ACARBOSE
     Dosage: 1X2PER DAY
     Route: 048
  8. SOMATULINE AUTOGEL 120MG [Suspect]
     Active Substance: LANREOTIDE ACETATE
     Indication: NEUROENDOCRINE TUMOUR
     Dosage: 120 MG
     Route: 065
     Dates: start: 20080821
  9. NORMITEN [Concomitant]
     Active Substance: ATENOLOL
     Route: 048
  10. ALLOPURINOL. [Concomitant]
     Active Substance: ALLOPURINOL
     Route: 048
  11. SIMVACOR [Concomitant]
     Active Substance: SIMVASTATIN
     Route: 048
  12. ALDOSPIRONE [Concomitant]
     Active Substance: SPIRONOLACTONE
     Route: 048
  13. LYRICA [Concomitant]
     Active Substance: PREGABALIN
     Dosage: 1X2PER DAY
     Route: 048
  14. LERCAPRESS [Concomitant]
     Active Substance: ENALAPRIL MALEATE\LERCANIDIPINE HYDROCHLORIDE
     Route: 048
  15. TRITACE [Concomitant]
     Active Substance: RAMIPRIL
     Route: 048

REACTIONS (7)
  - Swelling [Recovered/Resolved]
  - Herpes zoster [Recovering/Resolving]
  - Erythema [Recovered/Resolved]
  - Skin lesion [Recovered/Resolved]
  - Herpes virus infection [Unknown]
  - Pruritus [Recovered/Resolved]
  - Inappropriate schedule of product administration [Unknown]

NARRATIVE: CASE EVENT DATE: 2018
